FAERS Safety Report 16320487 (Version 1)
Quarter: 2019Q2

REPORT INFORMATION
  Report Type: Spontaneous
  Country: US (occurrence: US)
  Receive Date: 20190516
  Receipt Date: 20190516
  Transmission Date: 20190711
  Serious: No
  Sender: FDA-Public Use
  Company Number: US-PFIZER INC-2019207287

PATIENT
  Age: 64 Year
  Sex: Female
  Weight: 115.19 kg

DRUGS (1)
  1. GABAPENTIN. [Suspect]
     Active Substance: GABAPENTIN
     Dosage: UNK

REACTIONS (4)
  - Lip swelling [Unknown]
  - Drug hypersensitivity [Unknown]
  - Swelling face [Unknown]
  - Swollen tongue [Unknown]
